FAERS Safety Report 10188147 (Version 1)
Quarter: 2014Q2

REPORT INFORMATION
  Report Type: Spontaneous
  Country: US (occurrence: None)
  Receive Date: 20140521
  Receipt Date: 20140521
  Transmission Date: 20141212
  Serious: Yes (Life-Threatening, Disabling)
  Sender: FDA-Public Use
  Company Number: None

PATIENT
  Age: 75 Year
  Sex: Female
  Weight: 49.9 kg

DRUGS (10)
  1. LEVOFLOXACIN [Suspect]
     Indication: LUNG INFECTION
     Dosage: 1 TAB BY MOUTH DAILY 1 A DAY IV THEN PILL
     Route: 048
     Dates: start: 20140201, end: 20140206
  2. SPIRIVA [Concomitant]
  3. ADVAIR [Concomitant]
  4. PROAIR [Concomitant]
  5. DETROL [Concomitant]
  6. THYROID MED [Concomitant]
  7. IBUPROFEN 600 [Concomitant]
  8. FISH OIL [Concomitant]
  9. ASPIRIN [Concomitant]
  10. LEVAQUIN [Suspect]
     Indication: HAEMORRHAGE
     Dosage: 500 MG 1 TAB BY MOUTH DAILY 1 A DAY IV THEN PILL
     Route: 042
     Dates: start: 20140202, end: 20140206

REACTIONS (4)
  - Musculoskeletal stiffness [None]
  - Peripheral swelling [None]
  - Joint swelling [None]
  - Tendon disorder [None]
